FAERS Safety Report 9349313 (Version 1)
Quarter: 2013Q2

REPORT INFORMATION
  Report Type: Report from Study
  Country: IT (occurrence: IT)
  Receive Date: 20130614
  Receipt Date: 20130614
  Transmission Date: 20140414
  Serious: Yes (Other)
  Sender: FDA-Public Use
  Company Number: IT-MPIJNJ-2013-04387

PATIENT
  Sex: 0

DRUGS (1)
  1. VELCADE [Suspect]
     Indication: ACUTE MYELOID LEUKAEMIA
     Dosage: 1.5 MG/M2, CYCLIC
     Route: 065

REACTIONS (2)
  - Faecal incontinence [Recovered/Resolved]
  - Polyneuropathy [Recovered/Resolved]
